FAERS Safety Report 9175518 (Version 1)
Quarter: 2013Q1

REPORT INFORMATION
  Report Type: Report from Study
  Country: AT (occurrence: AT)
  Receive Date: 20130320
  Receipt Date: 20130320
  Transmission Date: 20140127
  Serious: Yes (Hospitalization)
  Sender: FDA-Public Use
  Company Number: AT-ROCHE-1203868

PATIENT
  Sex: 0

DRUGS (6)
  1. CAPECITABINE [Suspect]
     Indication: BREAST CANCER METASTATIC
     Dosage: 4000MG/DAY
     Route: 065
     Dates: start: 20061024, end: 20061107
  2. CAPECITABINE [Suspect]
     Route: 065
     Dates: start: 20061114, end: 20061128
  3. CAPECITABINE [Suspect]
     Route: 065
     Dates: start: 20061128, end: 20061212
  4. CAPECITABINE [Suspect]
     Route: 065
     Dates: start: 20061227, end: 20070110
  5. VINORELBINE [Suspect]
     Indication: BREAST CANCER METASTATIC
     Dosage: 50MG/DAY
     Route: 065
     Dates: start: 20061024, end: 20061107
  6. VINORELBINE [Suspect]
     Route: 065
     Dates: start: 20061227, end: 20070110

REACTIONS (1)
  - General physical health deterioration [Unknown]
